FAERS Safety Report 13333588 (Version 1)
Quarter: 2017Q1

REPORT INFORMATION
  Report Type: Spontaneous
  Country: FR (occurrence: FR)
  Receive Date: 20170313
  Receipt Date: 20170313
  Transmission Date: 20170428
  Serious: Yes (Life-Threatening, Hospitalization)
  Sender: FDA-Public Use
  Company Number: FR-PFIZER INC-2017105345

PATIENT
  Age: 18 Year
  Sex: Male
  Weight: 81 kg

DRUGS (8)
  1. KIDROLASE [Suspect]
     Active Substance: ASPARAGINASE
     Indication: B-CELL TYPE ACUTE LEUKAEMIA
     Dosage: 12000 IU, ON DAY8, DAY10, DAY12, DAY15, DAY17, DAY19, DAY22, DAY24, DAY26
     Route: 041
     Dates: start: 20170106, end: 20170125
  2. PREDNISONE ARROW [Suspect]
     Active Substance: PREDNISONE
     Indication: B-CELL TYPE ACUTE LEUKAEMIA
     Dosage: 60 MG, FROM DAY1 TO DAY7
     Route: 048
     Dates: start: 20161230
  3. PREDNISONE ARROW [Suspect]
     Active Substance: PREDNISONE
     Dosage: 80 MG, FROM DAY8 TO DAY28
     Route: 048
     Dates: end: 20170127
  4. HYDROCORTANCYL /00016201/ [Suspect]
     Active Substance: PREDNISONE
     Indication: B-CELL TYPE ACUTE LEUKAEMIA
     Dosage: 50 MG, ON DAY8, DAY15, DAY22
     Route: 042
     Dates: start: 20170106, end: 20170127
  5. LARGACTIL /00011902/ [Concomitant]
     Active Substance: CHLORPROMAZINE HYDROCHLORIDE
     Dosage: 100 MG, DAILY
  6. VINCRISTINE SULFATE. [Suspect]
     Active Substance: VINCRISTINE SULFATE
     Indication: B-CELL TYPE ACUTE LEUKAEMIA
     Dosage: 2 MG, ON DAY8, DAY15, DAY22 AND DAY29
     Route: 041
     Dates: start: 20170106, end: 20170128
  7. CERUBIDINE [Suspect]
     Active Substance: DAUNORUBICIN HYDROCHLORIDE
     Indication: B-CELL TYPE ACUTE LEUKAEMIA
     Dosage: 80 MG, ON DAY8, DAY15, DAY22, DAY23
     Route: 041
     Dates: start: 20170106, end: 20170122
  8. XEROQUEL [Concomitant]
     Active Substance: QUETIAPINE FUMARATE
     Dosage: 800 MG, DAILY

REACTIONS (1)
  - Posterior reversible encephalopathy syndrome [Recovered/Resolved]

NARRATIVE: CASE EVENT DATE: 20170208
